FAERS Safety Report 22040826 (Version 8)
Quarter: 2023Q4

REPORT INFORMATION
  Report Type: Report from Study
  Country: US (occurrence: US)
  Receive Date: 20230227
  Receipt Date: 20231115
  Transmission Date: 20240109
  Serious: Yes (Hospitalization)
  Sender: FDA-Public Use
  Company Number: US-ARGENX-2022-ARGX-US001583

PATIENT

DRUGS (2)
  1. VYVGART [Suspect]
     Active Substance: EFGARTIGIMOD ALFA-FCAB
     Indication: Myasthenia gravis
     Dosage: 10 MG/KG
     Route: 042
     Dates: start: 20220804
  2. VYVGART [Suspect]
     Active Substance: EFGARTIGIMOD ALFA-FCAB
     Dosage: 10 MG/KG
     Route: 042
     Dates: start: 20230206

REACTIONS (9)
  - Diaphragmatic operation [Unknown]
  - Insomnia [Unknown]
  - Myasthenia gravis [Unknown]
  - Therapy interrupted [Unknown]
  - Catarrh [Unknown]
  - Fall [Unknown]
  - Asthenopia [Unknown]
  - Myasthenia gravis [Unknown]
  - Fatigue [Unknown]

NARRATIVE: CASE EVENT DATE: 20230124
